FAERS Safety Report 5677944-6 (Version None)
Quarter: 2008Q1

REPORT INFORMATION
  Report Type: 
  Country: None (occurrence: None)
  Receive Date: 20080319
  Receipt Date: 20080311
  Transmission Date: 20080703
  Serious: Yes (Death, Hospitalization, Other)
  Sender: FDA-Public Use
  Company Number: 2008-00834

PATIENT
  Age: 68 Year
  Sex: Male

DRUGS (1)
  1. VELCADE [Suspect]
     Indication: MULTIPLE MYELOMA
     Dosage: 1.00 MG/M2
     Dates: start: 20071112

REACTIONS (2)
  - CEREBRAL HAEMORRHAGE [None]
  - DISEASE COMPLICATION [None]
